FAERS Safety Report 8527572 (Version 8)
Quarter: 2013Q4

REPORT INFORMATION
  Report Type: Report from Study
  Country: US (occurrence: US)
  Receive Date: 20120424
  Receipt Date: 20131224
  Transmission Date: 20140711
  Serious: Yes (Hospitalization)
  Sender: FDA-Public Use
  Company Number: US-JNJFOC-20120408677

PATIENT
  Age: 54 Year
  Sex: Female
  Weight: 54.43 kg

DRUGS (1)
  1. STELARA [Suspect]
     Indication: PSORIASIS
     Route: 058
     Dates: start: 20100518

REACTIONS (4)
  - Alcoholic pancreatitis [Recovered/Resolved]
  - Alcohol withdrawal syndrome [Recovered/Resolved with Sequelae]
  - Pulmonary mass [Unknown]
  - Depression [Recovered/Resolved]
